FAERS Safety Report 4719505-9 (Version None)
Quarter: 2005Q3

REPORT INFORMATION
  Report Type: 
  Country: None (occurrence: None)
  Receive Date: 20050719
  Receipt Date: 20050719
  Transmission Date: 20060218
  Serious: Yes (Hospitalization)
  Sender: FDA-Public Use
  Company Number: None

PATIENT
  Sex: Male

DRUGS (15)
  1. LISINOPRIL [Suspect]
     Indication: HYPERTENSION
     Dosage: 5 MG DAILY ORAL
     Route: 048
  2. AMITRIPTYLINE HCL [Concomitant]
  3. COLESTIPOL [Concomitant]
  4. DOCUSATE [Concomitant]
  5. FISH OIL [Concomitant]
  6. FOLIC ACID [Concomitant]
  7. GEMFIBROZIL [Concomitant]
  8. INSULIN [Concomitant]
  9. METOPROLOL [Concomitant]
  10. MIRTAZAPINE [Concomitant]
  11. MULTI-VITAMIN [Concomitant]
  12. OMEPRAZOLE [Concomitant]
  13. SENNOSIDES [Concomitant]
  14. SIMVASTATIN [Concomitant]
  15. WARFARIN [Concomitant]

REACTIONS (2)
  - ELECTROCARDIOGRAM CHANGE [None]
  - HYPERKALAEMIA [None]
